FAERS Safety Report 7504092-2 (Version None)
Quarter: 2011Q2

REPORT INFORMATION
  Report Type: 
  Country: None (occurrence: None)
  Receive Date: 20110525
  Receipt Date: 20110519
  Transmission Date: 20111010
  Serious: Yes (Hospitalization, Disabling)
  Sender: FDA-Public Use
  Company Number: EC-ABBOTT-11P-047-0727097-00

PATIENT
  Age: 85 Year
  Sex: Male

DRUGS (1)
  1. LUPRON DEPOT [Suspect]
     Indication: PROSTATE CANCER
     Route: 030

REACTIONS (5)
  - OEDEMA PERIPHERAL [None]
  - BONE PAIN [None]
  - ASTHENIA [None]
  - MYALGIA [None]
  - PULMONARY OEDEMA [None]
